FAERS Safety Report 4389308-6 (Version None)
Quarter: 2004Q3

REPORT INFORMATION
  Report Type: 
  Country: None (occurrence: None)
  Receive Date: 20040702
  Receipt Date: 20021114
  Transmission Date: 20050211
  Serious: Yes (Hospitalization)
  Sender: FDA-Public Use
  Company Number: ES-ROCHE-325743

PATIENT
  Age: 30 Year
  Sex: Female
  Weight: 54.8 kg

DRUGS (12)
  1. DACLIZUMAB [Suspect]
     Route: 042
     Dates: start: 20020819, end: 20020819
  2. DACLIZUMAB [Suspect]
     Dosage: FOR FOUR DOSES.
     Route: 042
     Dates: start: 20020902, end: 20021014
  3. MYCOPHENOLATE MOFETIL [Suspect]
     Route: 048
     Dates: start: 20020820, end: 20021014
  4. MYCOPHENOLATE MOFETIL [Suspect]
     Dosage: RESTARTED STUDY MYCOPHENOLATE MOFETIL AFTER BEING DISCHARGED FROM HOSPITAL
     Route: 048
  5. CELLCEPT [Suspect]
     Dosage: COMMERCIAL MMF.
     Route: 065
     Dates: start: 20021015, end: 20021029
  6. PREDNISONE [Suspect]
     Route: 065
     Dates: start: 20020916
  7. NEORAL [Suspect]
     Route: 065
     Dates: start: 20020916
  8. OMEPRAZOLE [Concomitant]
     Dates: start: 20020821
  9. ATENOLOL [Concomitant]
     Dates: start: 20020824
  10. ATORVASTATINA [Concomitant]
     Dates: start: 20020911
  11. URAPLEX [Concomitant]
     Dates: start: 20020910
  12. PHOSPHATE [Concomitant]
     Dosage: FORMULATION = PILLS.
     Dates: start: 20020912

REACTIONS (2)
  - CYTOMEGALOVIRUS INFECTION [None]
  - URINARY TRACT INFECTION [None]
